FAERS Safety Report 8037190-8 (Version None)
Quarter: 2012Q1

REPORT INFORMATION
  Report Type: 
  Country: None (occurrence: None)
  Receive Date: 20120109
  Receipt Date: 20110510
  Transmission Date: 20120608
  Serious: Yes (Other)
  Sender: FDA-Public Use
  Company Number: US-GDP-11410328

PATIENT
  Sex: Female

DRUGS (15)
  1. MULTI-VITAMIN [Concomitant]
  2. MAGNESIUM [Concomitant]
  3. SYNTHROID [Concomitant]
  4. FISH OIL [Concomitant]
  5. ASPIRIN [Concomitant]
  6. CALCIUM W/VITAMIN C/VITAMIN D [Concomitant]
  7. VITAMIN B COMPLEX CAP [Concomitant]
  8. KLARON [Concomitant]
  9. B12-VITAMIN [Concomitant]
  10. METRONIDAZOLE [Suspect]
     Indication: ROSACEA
     Dosage: (1 DF BID TOPICAL)
     Route: 061
     Dates: start: 19950101, end: 20110301
  11. PRILOSEC [Concomitant]
  12. VIVELLE-DOT [Concomitant]
  13. COQ10 [Concomitant]
  14. ZYRTEC [Concomitant]
  15. COSMETICS [Concomitant]

REACTIONS (8)
  - TARSAL TUNNEL SYNDROME [None]
  - ANAEMIA [None]
  - BLOOD CREATININE INCREASED [None]
  - HYPOAESTHESIA [None]
  - PARAESTHESIA [None]
  - NEUROPATHY PERIPHERAL [None]
  - BLOOD TRIGLYCERIDES DECREASED [None]
  - INTERVERTEBRAL DISC PROTRUSION [None]
